FAERS Safety Report 8471780-3 (Version None)
Quarter: 2012Q2

REPORT INFORMATION
  Report Type: 
  Country: None (occurrence: None)
  Receive Date: 20120627
  Receipt Date: 20120621
  Transmission Date: 20120825
  Serious: Yes (Hospitalization, Disabling)
  Sender: FDA-Public Use
  Company Number: GB-JNJFOC-20120213683

PATIENT
  Sex: Male
  Weight: 108 kg

DRUGS (7)
  1. TRAMADOL HCL [Concomitant]
     Indication: PAIN
     Route: 065
     Dates: start: 20110909
  2. STELARA [Suspect]
     Indication: PSORIASIS
     Route: 058
     Dates: start: 20120427
  3. CITALOPRAM HYDROBROMIDE [Concomitant]
     Indication: DEPRESSION
     Route: 065
     Dates: start: 20100108
  4. HYDROXYZINE [Concomitant]
     Indication: PRURITUS
     Route: 065
     Dates: start: 20081126
  5. FENTANYL [Concomitant]
     Indication: PAIN
     Route: 065
     Dates: start: 20110601
  6. ZOPICLONE [Concomitant]
     Route: 065
     Dates: start: 20081126
  7. STELARA [Suspect]
     Route: 058
     Dates: start: 20100222, end: 20111201

REACTIONS (3)
  - PAIN [None]
  - IMPAIRED HEALING [None]
  - SURGERY [None]
